FAERS Safety Report 4615887-7 (Version None)
Quarter: 2005Q1

REPORT INFORMATION
  Report Type: 
  Country: None (occurrence: None)
  Receive Date: 20050321
  Receipt Date: 20050314
  Transmission Date: 20050727
  Serious: Yes (Death)
  Sender: FDA-Public Use
  Company Number: GXKR2005GB00764

PATIENT
  Age: 56 Year
  Sex: Male

DRUGS (4)
  1. DIAZEPAM [Suspect]
  2. MIRTAZAPINE [Suspect]
  3. SILDENAFIL CITRATE [Suspect]
  4. ALCOHOL (ETHANOL) [Concomitant]

REACTIONS (1)
  - SUDDEN DEATH [None]
